FAERS Safety Report 7058473-4 (Version None)
Quarter: 2010Q4

REPORT INFORMATION
  Report Type: 
  Country: None (occurrence: None)
  Receive Date: 20101022
  Receipt Date: 20101013
  Transmission Date: 20110411
  Serious: Yes (Other)
  Sender: FDA-Public Use
  Company Number: US-WYE-H18203110

PATIENT
  Sex: Female
  Weight: 76.27 kg

DRUGS (5)
  1. EFFEXOR XR [Suspect]
     Indication: DEPRESSION
     Dosage: ^LOWER DOSE^STARTED ON UNKNOWN DATE AND INCREASED TO UNKNOWN DOSE ON AN UNKNOWN DATE
  2. EFFEXOR XR [Suspect]
     Indication: SUICIDAL IDEATION
  3. VITAMINS [Concomitant]
     Dosage: UNKNOWN
  4. MESTRANOL/NORETHISTERONE [Concomitant]
     Indication: MENSTRUATION IRREGULAR
     Dosage: UNKNOWN
     Dates: start: 20090101, end: 20100101
  5. YAZ [Concomitant]
     Indication: MENSTRUATION IRREGULAR
     Dosage: UNKNOWN

REACTIONS (6)
  - ASTHENIA [None]
  - DEPRESSION [None]
  - PHOTOPHOBIA [None]
  - SINUS HEADACHE [None]
  - SUICIDAL IDEATION [None]
  - VISUAL IMPAIRMENT [None]
